FAERS Safety Report 4801623-8 (Version None)
Quarter: 2005Q4

REPORT INFORMATION
  Report Type: 
  Country: None (occurrence: None)
  Receive Date: 20051014
  Receipt Date: 20051014
  Transmission Date: 20060501
  Serious: Yes (Hospitalization)
  Sender: FDA-Public Use
  Company Number: None

PATIENT
  Sex: Male
  Weight: 83.3 kg

DRUGS (4)
  1. IRINOTECAN 125 MG/MG [Suspect]
     Indication: GLIOBLASTOMA MULTIFORME
     Dosage: 240 MG
     Dates: start: 20050728
  2. IRINOTECAN 125 MG/MG [Suspect]
     Indication: GLIOBLASTOMA MULTIFORME
     Dosage: 240 MG
     Dates: start: 20050811
  3. IRINOTECAN 125 MG/MG [Suspect]
     Indication: GLIOBLASTOMA MULTIFORME
     Dosage: 240 MG
     Dates: start: 20050829
  4. BEVACIZUMAB 10 MG/KG [Suspect]
     Indication: GLIOBLASTOMA MULTIFORME
     Dosage: 833 MG

REACTIONS (3)
  - HICCUPS [None]
  - NAUSEA [None]
  - VOMITING [None]
